FAERS Safety Report 11803178 (Version 1)
Quarter: 2015Q4

REPORT INFORMATION
  Report Type: Spontaneous
  Country: MX (occurrence: MX)
  Receive Date: 20151204
  Receipt Date: 20151204
  Transmission Date: 20160305
  Serious: Yes (Other)
  Sender: FDA-Public Use
  Company Number: MX-BAYER-2015-478280

PATIENT
  Sex: Male

DRUGS (2)
  1. LEVITRA [Suspect]
     Active Substance: VARDENAFIL HYDROCHLORIDE TRIHYDRATE
     Dosage: 10 MG, UNK
  2. NEBIDO [Suspect]
     Active Substance: TESTOSTERONE UNDECANOATE
     Dosage: UNK

REACTIONS (2)
  - Angina unstable [None]
  - Tachycardia [None]
